FAERS Safety Report 20409873 (Version 1)
Quarter: 2022Q1

REPORT INFORMATION
  Report Type: Spontaneous
  Country: US (occurrence: None)
  Receive Date: 20220131
  Receipt Date: 20220131
  Transmission Date: 20220423
  Serious: No
  Sender: FDA-Public Use
  Company Number: None

PATIENT
  Age: 49 Year
  Sex: Male

DRUGS (4)
  1. HUMIRA [Suspect]
     Active Substance: ADALIMUMAB
     Dosage: OTHER FREQUENCY : EVERY 2 WEEKS;?
  2. ZINC [Concomitant]
     Active Substance: ZINC
  3. FOLIC ACID [Concomitant]
     Active Substance: FOLIC ACID
  4. Methotrexate 15mg weekly [Concomitant]

REACTIONS (3)
  - Peripheral swelling [None]
  - Weight increased [None]
  - Musculoskeletal disorder [None]

NARRATIVE: CASE EVENT DATE: 20220131
